FAERS Safety Report 25698884 (Version 1)
Quarter: 2025Q3

REPORT INFORMATION
  Report Type: Spontaneous
  Country: US (occurrence: US)
  Receive Date: 20250819
  Receipt Date: 20250819
  Transmission Date: 20251021
  Serious: No
  Sender: AUROBINDO
  Company Number: US-AUROBINDO-AUR-APL-2025-033112

PATIENT
  Age: 18 Year
  Sex: Female

DRUGS (1)
  1. ISOTRETINOIN [Suspect]
     Active Substance: ISOTRETINOIN
     Indication: Product used for unknown indication
     Dosage: 1 DOSAGE FORM, ONCE A DAY (1 CAPSULE A DAY)
     Route: 065
     Dates: start: 20250114, end: 20250624

REACTIONS (2)
  - Acne [Unknown]
  - Therapy change [Unknown]

NARRATIVE: CASE EVENT DATE: 20250624
